FAERS Safety Report 7903328-3 (Version None)
Quarter: 2011Q4

REPORT INFORMATION
  Report Type: 
  Country: None (occurrence: None)
  Receive Date: 20111109
  Receipt Date: 20111103
  Transmission Date: 20120403
  Serious: Yes (Other)
  Sender: FDA-Public Use
  Company Number: US-PFIZER INC-2011269762

PATIENT
  Sex: Female
  Weight: 77.098 kg

DRUGS (1)
  1. CELEBREX [Suspect]
     Indication: ARTHRALGIA
     Dosage: UNK, 1X/DAY
     Route: 048
     Dates: start: 20111014, end: 20111102

REACTIONS (2)
  - URTICARIA [None]
  - RASH [None]
